FAERS Safety Report 5588529-4 (Version None)
Quarter: 2008Q1

REPORT INFORMATION
  Report Type: 
  Country: None (occurrence: None)
  Receive Date: 20080111
  Receipt Date: 20080107
  Transmission Date: 20080703
  Serious: Yes (Death, Hospitalization)
  Sender: FDA-Public Use
  Company Number: FR-ROCHE-540146

PATIENT
  Age: 83 Year
  Sex: Male

DRUGS (11)
  1. CAPECITABINE [Suspect]
     Route: 048
     Dates: start: 20040109, end: 20040122
  2. CAPECITABINE [Suspect]
     Route: 048
     Dates: start: 20040206
  3. CAPECITABINE [Suspect]
     Route: 048
     Dates: start: 20040313, end: 20040327
  4. OXALIPLATIN [Suspect]
     Route: 050
     Dates: start: 20040110, end: 20040110
  5. OXALIPLATIN [Suspect]
     Route: 050
     Dates: start: 20040206
  6. OXALIPLATIN [Suspect]
     Dosage: FORM INJECTABLE
     Route: 050
     Dates: start: 20040312, end: 20040312
  7. NITRODERM [Concomitant]
     Dates: end: 20040509
  8. VASTAREL [Concomitant]
     Dates: end: 20040509
  9. CELECTOL [Concomitant]
     Dates: end: 20040509
  10. 1 CONCOMITANT DRUG [Concomitant]
     Dosage: DRUG NAME MONOTILDIEM
     Dates: end: 20040509
  11. CORVASAL [Concomitant]
     Dates: end: 20040509

REACTIONS (4)
  - ASTHENIA [None]
  - CARDIAC FAILURE [None]
  - DIARRHOEA [None]
  - DYSPNOEA [None]
